FAERS Safety Report 24941505 (Version 1)
Quarter: 2025Q1

REPORT INFORMATION
  Report Type: Report from Study
  Country: US (occurrence: US)
  Receive Date: 20250207
  Receipt Date: 20250207
  Transmission Date: 20250409
  Serious: Yes (Other)
  Sender: NOVARTIS
  Company Number: US-002147023-NVSC2024US206815

PATIENT
  Sex: Female

DRUGS (1)
  1. KESIMPTA [Suspect]
     Active Substance: OFATUMUMAB
     Indication: Product used for unknown indication
     Route: 065

REACTIONS (8)
  - Nephrolithiasis [Unknown]
  - Fatigue [Unknown]
  - Dizziness [Unknown]
  - Muscular weakness [Unknown]
  - Back pain [Unknown]
  - Pyrexia [Unknown]
  - Pain [Unknown]
  - Gait disturbance [Unknown]
